FAERS Safety Report 8518685-7 (Version None)
Quarter: 2012Q3

REPORT INFORMATION
  Report Type: 
  Country: None (occurrence: None)
  Receive Date: 20120718
  Receipt Date: 20110714
  Transmission Date: 20120928
  Serious: No
  Sender: FDA-Public Use
  Company Number: US-BRISTOL-MYERS SQUIBB COMPANY-15810005

PATIENT
  Sex: Female

DRUGS (4)
  1. SIMVASTATIN [Concomitant]
  2. COUMADIN [Suspect]
     Dosage: STARTED 1WEEK AGO
  3. WARFARIN SODIUM [Suspect]
  4. ATACAND [Concomitant]

REACTIONS (2)
  - NAUSEA [None]
  - CYSTITIS [None]
